FAERS Safety Report 18135485 (Version 1)
Quarter: 2020Q3

REPORT INFORMATION
  Report Type: Spontaneous
  Country: CL (occurrence: CL)
  Receive Date: 20200811
  Receipt Date: 20200811
  Transmission Date: 20201103
  Serious: Yes (Death)
  Sender: FDA-Public Use
  Company Number: CL-ALLERGAN-2029647US

PATIENT
  Sex: Male

DRUGS (3)
  1. MEROPENEM. [Concomitant]
     Active Substance: MEROPENEM
  2. CEFTAZIDIME;AVIBACTAM ? BP [Suspect]
     Active Substance: AVIBACTAM SODIUM\CEFTAZIDIME
     Indication: COVID-19
     Dosage: 2.5 G, Q8HR
     Route: 065
  3. COLISTIN [Concomitant]
     Active Substance: COLISTIN

REACTIONS (2)
  - Off label use [Unknown]
  - Superinfection bacterial [Fatal]
